FAERS Safety Report 13250974 (Version 1)
Quarter: 2017Q1

REPORT INFORMATION
  Report Type: Spontaneous
  Country: NL (occurrence: NL)
  Receive Date: 20170220
  Receipt Date: 20170220
  Transmission Date: 20170428
  Serious: Yes (Other)
  Sender: FDA-Public Use
  Company Number: NL-UCBSA-2017006185

PATIENT
  Sex: Male
  Weight: 90 kg

DRUGS (1)
  1. KEPPRA [Suspect]
     Active Substance: LEVETIRACETAM
     Indication: EPILEPSY
     Dosage: 250 MG, 2X/DAY (BID)
     Dates: start: 2015, end: 2016

REACTIONS (2)
  - Aggression [Recovered/Resolved]
  - Physical assault [Recovered/Resolved]

NARRATIVE: CASE EVENT DATE: 2015
